FAERS Safety Report 24916989 (Version 1)
Quarter: 2025Q1

REPORT INFORMATION
  Report Type: Spontaneous
  Country: US (occurrence: None)
  Receive Date: 20250201
  Receipt Date: 20250201
  Transmission Date: 20250409
  Serious: Yes (Hospitalization)
  Sender: FDA-CTU
  Company Number: None

PATIENT
  Sex: Male

DRUGS (7)
  1. TASIGNA [Suspect]
     Active Substance: NILOTINIB
     Indication: Chronic myeloid leukaemia
     Dosage: TAKE 2 CAPSULES BY MOUTH TWICE DAILY ON EMTY STOMACH 1 HOURS BEFOR OR 2 HOURS AFTER A MEAL ?
     Route: 048
     Dates: start: 20250110
  2. TASIGNA [Suspect]
     Active Substance: NILOTINIB
     Indication: Chronic myeloid leukaemia
  3. GUAIFENESIN [Concomitant]
     Active Substance: GUAIFENESIN
  4. MULTIPLE VIT [Concomitant]
  5. ONDANSETRON [Concomitant]
     Active Substance: ONDANSETRON
  6. REPATHA SURE INJ [Concomitant]
  7. TIOTROP BROM [Concomitant]

REACTIONS (3)
  - Pneumonia [None]
  - Cardiac failure [None]
  - Therapy interrupted [None]
